FAERS Safety Report 7733185-X (Version None)
Quarter: 2011Q3

REPORT INFORMATION
  Report Type: 
  Country: None (occurrence: None)
  Receive Date: 20110907
  Receipt Date: 20110831
  Transmission Date: 20111222
  Serious: Yes (Death, Hospitalization)
  Sender: FDA-Public Use
  Company Number: AR-ASTELLAS-2011US005557

PATIENT
  Sex: Female

DRUGS (1)
  1. ERLOTINIB HYDROCHLORIDE [Suspect]
     Indication: LUNG NEOPLASM MALIGNANT
     Dosage: 150 MG, UID/QD
     Route: 048
     Dates: start: 20110515, end: 20110520

REACTIONS (5)
  - PNEUMONIA [None]
  - PYREXIA [None]
  - SOMNOLENCE [None]
  - DIARRHOEA [None]
  - ANGINA UNSTABLE [None]
